FAERS Safety Report 10146288 (Version 1)
Quarter: 2014Q2

REPORT INFORMATION
  Report Type: Spontaneous
  Country: US (occurrence: None)
  Receive Date: 20140430
  Receipt Date: 20140430
  Transmission Date: 20141212
  Serious: No
  Sender: FDA-Public Use
  Company Number: None

PATIENT
  Age: 52 Year
  Sex: Male
  Weight: 99.79 kg

DRUGS (1)
  1. ROPINIROLE HCL [Suspect]
     Indication: RESTLESS LEGS SYNDROME
     Dosage: 4 TABLETS?ONCE DAILY?TAKEN BY MOUTH
     Route: 048
     Dates: start: 20140414, end: 20140417

REACTIONS (1)
  - Nausea [None]
